FAERS Safety Report 8383048-4 (Version None)
Quarter: 2012Q2

REPORT INFORMATION
  Report Type: 
  Country: None (occurrence: None)
  Receive Date: 20120524
  Receipt Date: 20120522
  Transmission Date: 20120825
  Serious: Yes (Hospitalization, Other)
  Sender: FDA-Public Use
  Company Number: PHHY2012VN043870

PATIENT
  Sex: Female

DRUGS (3)
  1. ZOLEDRONOC ACID [Suspect]
     Indication: OSTEOPOROSIS
     Dosage: 5 MG/100 ML
     Route: 042
     Dates: start: 20120502
  2. GLUCOSAMINE [Concomitant]
     Dosage: 2 DF, DAILY
  3. DICLOFENAC SODIUM [Concomitant]
     Dosage: 2 DF, DAILY

REACTIONS (5)
  - OCULAR ICTERUS [None]
  - YELLOW SKIN [None]
  - HEPATITIS [None]
  - JAUNDICE [None]
  - FATIGUE [None]
